FAERS Safety Report 9287768 (Version 1)
Quarter: 2013Q2

REPORT INFORMATION
  Report Type: Spontaneous
  Country: US (occurrence: US)
  Receive Date: 20130514
  Receipt Date: 20130514
  Transmission Date: 20140414
  Serious: No
  Sender: FDA-Public Use
  Company Number: US-PFIZER INC-2013143313

PATIENT
  Age: 33 Year
  Sex: Female
  Weight: 88.66 kg

DRUGS (2)
  1. LEVOXYL [Suspect]
     Indication: HYPOTHYROIDISM
     Dosage: 112 UG, 1X/DAY
     Route: 048
     Dates: start: 1995
  2. LEVOXYL [Suspect]
     Dosage: 150 UG, 1X/DAY
     Route: 048
     Dates: end: 2013

REACTIONS (1)
  - Thyroid function test abnormal [Unknown]
